FAERS Safety Report 8335100-7 (Version None)
Quarter: 2012Q2

REPORT INFORMATION
  Report Type: 
  Country: None (occurrence: None)
  Receive Date: 20120503
  Receipt Date: 20100505
  Transmission Date: 20120825
  Serious: No
  Sender: FDA-Public Use
  Company Number: US-TEVA-2010002578

PATIENT
  Sex: Female
  Weight: 63.56 kg

DRUGS (6)
  1. NUVIGIL [Suspect]
     Dosage: 100 MILLIGRAM;
     Route: 048
     Dates: start: 20100401, end: 20100417
  2. NUVIGIL [Suspect]
     Indication: NARCOLEPSY
     Dosage: 150 MILLIGRAM;
     Route: 048
     Dates: start: 20100418
  3. NUVIGIL [Suspect]
     Dosage: 50 MILLIGRAM;
     Route: 048
     Dates: start: 20100322, end: 20100401
  4. LASIX [Concomitant]
     Indication: MITRAL VALVE DISEASE
     Dosage: 40 MILLIGRAM;
     Dates: start: 20081201
  5. CARDIZEM [Concomitant]
     Indication: MITRAL VALVE DISEASE
     Dates: start: 20081201
  6. LAMICTAL [Concomitant]
     Indication: BIPOLAR DISORDER
     Dates: start: 20081201

REACTIONS (6)
  - PYREXIA [None]
  - ANXIETY [None]
  - DRUG INEFFECTIVE [None]
  - CRYING [None]
  - DEPRESSION [None]
  - CHILLS [None]
